FAERS Safety Report 5000840-4 (Version None)
Quarter: 2006Q2

REPORT INFORMATION
  Report Type: 
  Country: None (occurrence: None)
  Receive Date: 20060512
  Receipt Date: 20060502
  Transmission Date: 20061013
  Serious: Yes (Hospitalization)
  Sender: FDA-Public Use
  Company Number: US-MERCK-0605USA00801

PATIENT
  Age: 48 Year
  Sex: Female
  Weight: 58 kg

DRUGS (4)
  1. VIOXX [Suspect]
     Indication: ARTHRITIS
     Route: 048
     Dates: start: 19991201, end: 20010101
  2. MAXALT [Concomitant]
     Route: 048
  3. K-DUR 10 [Concomitant]
     Route: 065
  4. EFFEXOR [Concomitant]
     Route: 065

REACTIONS (1)
  - MYOCARDIAL INFARCTION [None]
